FAERS Safety Report 22203378 (Version 1)
Quarter: 2023Q2

REPORT INFORMATION
  Report Type: Spontaneous
  Country: US (occurrence: None)
  Receive Date: 20230412
  Receipt Date: 20230412
  Transmission Date: 20230721
  Serious: Yes (Hospitalization)
  Sender: FDA-Public Use
  Company Number: None

PATIENT
  Sex: Female

DRUGS (20)
  1. ACTEMRA [Suspect]
     Active Substance: TOCILIZUMAB
     Indication: Rheumatoid arthritis
     Dosage: 162 MG/0.9ML  SUBCUTANEOUS??INJECT 1 SYRINGE (162 MG) UNDER THE SKIN (SUBCUTANEOUS INJECTION) EVERY
     Route: 058
     Dates: start: 20220902
  2. ACTEMRA [Suspect]
     Active Substance: TOCILIZUMAB
     Dosage: OTHER QUANTITY : 1 SYRINGE;?FREQUENCY : EVERY OTHER WEEK;?
     Route: 058
  3. ALBUTEROL [Concomitant]
     Active Substance: ALBUTEROL
  4. ALPRAZOLAM [Concomitant]
  5. BUT/APAP/CAF [Concomitant]
  6. CITALOPRAM [Concomitant]
  7. EMGALITY [Concomitant]
     Active Substance: GALCANEZUMAB-GNLM
  8. FOLIC ACID [Concomitant]
     Active Substance: FOLIC ACID
  9. HYDROXYCHLOROQUINE [Concomitant]
     Active Substance: HYDROXYCHLOROQUINE
  10. METHOTREXATE [Concomitant]
     Active Substance: METHOTREXATE
  11. METHYLPHENIDATE [Concomitant]
     Active Substance: METHYLPHENIDATE
  12. MORPHINE SUL [Concomitant]
  13. NURTEC [Concomitant]
  14. ONDANSETRON [Concomitant]
  15. OXYCODONE [Concomitant]
  16. PANTOPRAZOLE [Concomitant]
     Active Substance: PANTOPRAZOLE
  17. PREDNISONE [Concomitant]
  18. PREGABALIN [Concomitant]
  19. RIZATRIPTAN [Concomitant]
  20. VENTOLIN HFA AER [Concomitant]

REACTIONS (2)
  - Gastrointestinal disorder [None]
  - Therapy interrupted [None]

NARRATIVE: CASE EVENT DATE: 20230301
